FAERS Safety Report 20636607 (Version 1)
Quarter: 2022Q1

REPORT INFORMATION
  Report Type: Spontaneous
  Country: US (occurrence: None)
  Receive Date: 20220324
  Receipt Date: 20220324
  Transmission Date: 20220424
  Serious: Yes (Other)
  Sender: FDA-Public Use
  Company Number: None

PATIENT
  Age: 81 Year
  Sex: Female
  Weight: 67.95 kg

DRUGS (24)
  1. FLUTICASONE PROPIONATE\SALMETEROL XINAFOATE [Suspect]
     Active Substance: FLUTICASONE PROPIONATE\SALMETEROL XINAFOATE
     Indication: Asthma
     Dosage: OTHER STRENGTH : MCG;?OTHER QUANTITY : 1 INHALATION(S);?FREQUENCY : TWICE A DAY;?
     Route: 055
     Dates: start: 20220314, end: 20220314
  2. CLARITIN [Concomitant]
     Active Substance: LORATADINE
  3. FLONASE SENSIMIST ALLERGY RELIEF [Concomitant]
     Active Substance: FLUTICASONE FUROATE
  4. XYZAL (LEVOCETIRIZINE) [Concomitant]
  5. PROAIR HFA [Concomitant]
     Active Substance: ALBUTEROL SULFATE
  6. SINGULAIR [Concomitant]
     Active Substance: MONTELUKAST SODIUM
  7. LEXAPRO [Concomitant]
     Active Substance: ESCITALOPRAM OXALATE
  8. RESTASIS [Concomitant]
     Active Substance: CYCLOSPORINE
  9. XALATAN [Concomitant]
     Active Substance: LATANOPROST
  10. COREG [Concomitant]
     Active Substance: CARVEDILOL
  11. VENTOLIN [Concomitant]
     Active Substance: ALBUTEROL SULFATE
  12. COZAAR [Concomitant]
     Active Substance: LOSARTAN POTASSIUM
  13. LASIX [Concomitant]
     Active Substance: FUROSEMIDE
  14. SPIRONOLA ACTONE [Concomitant]
  15. LEVSIN/SL [Concomitant]
  16. CLOBETASOL [Concomitant]
     Active Substance: CLOBETASOL
  17. CALCIUM [Concomitant]
     Active Substance: CALCIUM
  18. CHOLESTOFF PLUS [Concomitant]
  19. CINSULIN [Concomitant]
  20. COCONUT OIL [Concomitant]
     Active Substance: COCONUT OIL
  21. MELATONIN [Concomitant]
     Active Substance: MELATONIN
  22. VITAMIN C [Concomitant]
     Active Substance: ASCORBIC ACID
  23. VITAMIN D3 [Concomitant]
     Active Substance: CHOLECALCIFEROL
  24. ROOTOLOGY BREATHE FREE [Concomitant]

REACTIONS (4)
  - Product substitution issue [None]
  - Pruritus [None]
  - Scratch [None]
  - Haemorrhage [None]

NARRATIVE: CASE EVENT DATE: 20220314
